FAERS Safety Report 16961473 (Version 1)
Quarter: 2019Q4

REPORT INFORMATION
  Report Type: Spontaneous
  Country: FR (occurrence: FR)
  Receive Date: 20191025
  Receipt Date: 20191025
  Transmission Date: 20200122
  Serious: Yes (Hospitalization, Other)
  Sender: FDA-Public Use
  Company Number: FR-SA-2019SA293620

PATIENT
  Age: 70 Year
  Sex: Female
  Weight: 82 kg

DRUGS (15)
  1. RIFADINE [Suspect]
     Active Substance: RIFAMPIN
     Indication: SEPSIS
     Dosage: 2400 MG, QD
     Route: 042
     Dates: start: 20190807, end: 20190818
  2. NORADRENALINE [NOREPINEPHRINE] [Concomitant]
     Active Substance: NOREPINEPHRINE
  3. MACROGOL 3350/POTASSIUM CHLORIDE/SODIUM BICARBONATE/SODIUM CHLORIDE [Suspect]
     Active Substance: POLYETHYLENE GLYCOL 3350\POTASSIUM CHLORIDE\SODIUM BICARBONATE\SODIUM CHLORIDE
     Indication: CONSTIPATION
     Dosage: 2 DF, QD
     Route: 048
     Dates: start: 20190806, end: 20190813
  4. OFLOCET [OFLOXACIN] [Concomitant]
     Active Substance: OFLOXACIN
  5. SUFENTANIL [Suspect]
     Active Substance: SUFENTANIL
     Indication: SEDATION
     Route: 042
     Dates: start: 20190808, end: 20190814
  6. PANTOPRAZOLE [Concomitant]
     Active Substance: PANTOPRAZOLE
  7. CORDARONE [Suspect]
     Active Substance: AMIODARONE HYDROCHLORIDE
     Indication: ATRIAL FIBRILLATION
     Dosage: UNK
     Route: 042
     Dates: start: 20190810, end: 20190816
  8. CEFOTAXIME SODIUM [Suspect]
     Active Substance: CEFOTAXIME SODIUM
     Indication: SEPSIS
     Dosage: 17 G, QD
     Route: 042
     Dates: start: 20190807, end: 20190812
  9. FLUCORTAC [Suspect]
     Active Substance: FLUDROCORTISONE ACETATE
     Indication: PRODUCT USED FOR UNKNOWN INDICATION
     Dosage: 1 DF, QD
     Route: 048
     Dates: start: 20190808, end: 20190814
  10. INSULINE [INSULIN PORCINE] [Concomitant]
  11. DAPTOMYCINE [Concomitant]
     Active Substance: DAPTOMYCIN
  12. KARDEGIC [Concomitant]
     Active Substance: ASPIRIN DL-LYSINE
  13. CALCIPARINE [Suspect]
     Active Substance: HEPARIN CALCIUM
     Indication: ANTICOAGULANT THERAPY
     Dosage: 10000 IU, QD
     Route: 058
     Dates: start: 20190801, end: 20190817
  14. TOPALGIC (TRAMADOL HYDROCHLORIDE) [Suspect]
     Active Substance: TRAMADOL HYDROCHLORIDE
     Indication: PAIN
     Dosage: 1 DF, PRN (1 AMP / 6H IF NEEDED)
     Route: 042
     Dates: start: 20190808, end: 20190818
  15. HYDROCORTISONE UPJOHN [Suspect]
     Active Substance: HYDROCORTISONE
     Indication: PRODUCT USED FOR UNKNOWN INDICATION
     Dosage: 50 MG, QID
     Route: 042
     Dates: start: 20190808, end: 20190814

REACTIONS (2)
  - Overdose [Unknown]
  - Jaundice cholestatic [Recovered/Resolved]

NARRATIVE: CASE EVENT DATE: 20190807
